FAERS Safety Report 26171487 (Version 1)
Quarter: 2025Q4

REPORT INFORMATION
  Report Type: Spontaneous
  Country: EU (occurrence: EU)
  Receive Date: 20251217
  Receipt Date: 20251217
  Transmission Date: 20260117
  Serious: Yes (Hospitalization, Other)
  Sender: MYLAN
  Company Number: EU-Desitin-2025-02887

PATIENT
  Age: 28 Year
  Sex: Male

DRUGS (64)
  1. LEVETIRACETAM [Suspect]
     Active Substance: LEVETIRACETAM
     Indication: Product used for unknown indication
     Dosage: 500 MILLIGRAM, BID (1-0-1)
     Route: 065
  2. LEVETIRACETAM [Suspect]
     Active Substance: LEVETIRACETAM
     Dosage: 500 MILLIGRAM, BID (1-0-1)
  3. LEVETIRACETAM [Suspect]
     Active Substance: LEVETIRACETAM
     Dosage: 500 MILLIGRAM, BID (1-0-1)
  4. LEVETIRACETAM [Suspect]
     Active Substance: LEVETIRACETAM
     Dosage: 500 MILLIGRAM, BID (1-0-1)
     Route: 065
  5. LEVETIRACETAM [Suspect]
     Active Substance: LEVETIRACETAM
     Dosage: 750 MILLIGRAM, BID (1-0-1)
     Route: 065
  6. LEVETIRACETAM [Suspect]
     Active Substance: LEVETIRACETAM
     Dosage: 750 MILLIGRAM, BID (1-0-1)
  7. LEVETIRACETAM [Suspect]
     Active Substance: LEVETIRACETAM
     Dosage: 750 MILLIGRAM, BID (1-0-1)
  8. LEVETIRACETAM [Suspect]
     Active Substance: LEVETIRACETAM
     Dosage: 750 MILLIGRAM, BID (1-0-1)
     Route: 065
  9. LEVETIRACETAM [Suspect]
     Active Substance: LEVETIRACETAM
     Dosage: 1000 MILLIGRAM, BID (1-0-1)
  10. LEVETIRACETAM [Suspect]
     Active Substance: LEVETIRACETAM
     Dosage: 1000 MILLIGRAM, BID (1-0-1)
  11. LEVETIRACETAM [Suspect]
     Active Substance: LEVETIRACETAM
     Dosage: 1000 MILLIGRAM, BID (1-0-1)
     Route: 065
  12. LEVETIRACETAM [Suspect]
     Active Substance: LEVETIRACETAM
     Dosage: 1000 MILLIGRAM, BID (1-0-1)
     Route: 065
  13. LEVETIRACETAM [Suspect]
     Active Substance: LEVETIRACETAM
     Dosage: 1250 MILLIGRAM, BID (1250 MG-0-1250 MG)
  14. LEVETIRACETAM [Suspect]
     Active Substance: LEVETIRACETAM
     Dosage: 1250 MILLIGRAM, BID (1250 MG-0-1250 MG)
  15. LEVETIRACETAM [Suspect]
     Active Substance: LEVETIRACETAM
     Dosage: 1250 MILLIGRAM, BID (1250 MG-0-1250 MG)
     Route: 065
  16. LEVETIRACETAM [Suspect]
     Active Substance: LEVETIRACETAM
     Dosage: 1250 MILLIGRAM, BID (1250 MG-0-1250 MG)
     Route: 065
  17. VALPROATE [Suspect]
     Active Substance: VALPROIC ACID
     Indication: Product used for unknown indication
     Dosage: 1000 MILLIGRAM, BID (2-0-2)
  18. VALPROATE [Suspect]
     Active Substance: VALPROIC ACID
     Dosage: 1000 MILLIGRAM, BID (2-0-2)
  19. VALPROATE [Suspect]
     Active Substance: VALPROIC ACID
     Dosage: 1000 MILLIGRAM, BID (2-0-2)
     Route: 065
  20. VALPROATE [Suspect]
     Active Substance: VALPROIC ACID
     Dosage: 1000 MILLIGRAM, BID (2-0-2)
     Route: 065
  21. VALPROATE [Suspect]
     Active Substance: VALPROIC ACID
     Dosage: 750 MILLIGRAM, BID (1.5-0-1.5)
  22. VALPROATE [Suspect]
     Active Substance: VALPROIC ACID
     Dosage: 750 MILLIGRAM, BID (1.5-0-1.5)
  23. VALPROATE [Suspect]
     Active Substance: VALPROIC ACID
     Dosage: 750 MILLIGRAM, BID (1.5-0-1.5)
     Route: 065
  24. VALPROATE [Suspect]
     Active Substance: VALPROIC ACID
     Dosage: 750 MILLIGRAM, BID (1.5-0-1.5)
     Route: 065
  25. BRIVARACETAM [Suspect]
     Active Substance: BRIVARACETAM
     Indication: Product used for unknown indication
     Dosage: 75 MILLIGRAM, QD (25 MG-0-50 MG)
  26. BRIVARACETAM [Suspect]
     Active Substance: BRIVARACETAM
     Dosage: 75 MILLIGRAM, QD (25 MG-0-50 MG)
  27. BRIVARACETAM [Suspect]
     Active Substance: BRIVARACETAM
     Dosage: 75 MILLIGRAM, QD (25 MG-0-50 MG)
     Route: 065
  28. BRIVARACETAM [Suspect]
     Active Substance: BRIVARACETAM
     Dosage: 75 MILLIGRAM, QD (25 MG-0-50 MG)
     Route: 065
  29. BRIVARACETAM [Suspect]
     Active Substance: BRIVARACETAM
     Dosage: 100 MILLIGRAM, QD
  30. BRIVARACETAM [Suspect]
     Active Substance: BRIVARACETAM
     Dosage: 100 MILLIGRAM, QD
  31. BRIVARACETAM [Suspect]
     Active Substance: BRIVARACETAM
     Dosage: 100 MILLIGRAM, QD
     Route: 065
  32. BRIVARACETAM [Suspect]
     Active Substance: BRIVARACETAM
     Dosage: 100 MILLIGRAM, QD
     Route: 065
  33. BRIVARACETAM [Suspect]
     Active Substance: BRIVARACETAM
     Dosage: 25 MILLIGRAM, QD
  34. BRIVARACETAM [Suspect]
     Active Substance: BRIVARACETAM
     Dosage: 25 MILLIGRAM, QD
     Route: 065
  35. BRIVARACETAM [Suspect]
     Active Substance: BRIVARACETAM
     Dosage: 25 MILLIGRAM, QD
  36. BRIVARACETAM [Suspect]
     Active Substance: BRIVARACETAM
     Dosage: 25 MILLIGRAM, QD
     Route: 065
  37. OXCARBAZEPINE [Suspect]
     Active Substance: OXCARBAZEPINE
     Indication: Product used for unknown indication
     Dosage: 300 MILLIGRAM, BID (1-0-1)
  38. OXCARBAZEPINE [Suspect]
     Active Substance: OXCARBAZEPINE
     Dosage: 300 MILLIGRAM, BID (1-0-1)
  39. OXCARBAZEPINE [Suspect]
     Active Substance: OXCARBAZEPINE
     Dosage: 300 MILLIGRAM, BID (1-0-1)
     Route: 065
  40. OXCARBAZEPINE [Suspect]
     Active Substance: OXCARBAZEPINE
     Dosage: 300 MILLIGRAM, BID (1-0-1)
     Route: 065
  41. OXCARBAZEPINE [Suspect]
     Active Substance: OXCARBAZEPINE
     Dosage: 900 MILLIGRAM, QD (1-0-2)
  42. OXCARBAZEPINE [Suspect]
     Active Substance: OXCARBAZEPINE
     Dosage: 900 MILLIGRAM, QD (1-0-2)
  43. OXCARBAZEPINE [Suspect]
     Active Substance: OXCARBAZEPINE
     Dosage: 900 MILLIGRAM, QD (1-0-2)
     Route: 065
  44. OXCARBAZEPINE [Suspect]
     Active Substance: OXCARBAZEPINE
     Dosage: 900 MILLIGRAM, QD (1-0-2)
     Route: 065
  45. OXCARBAZEPINE [Suspect]
     Active Substance: OXCARBAZEPINE
     Dosage: 600 MILLIGRAM, BID (2-0-2)
  46. OXCARBAZEPINE [Suspect]
     Active Substance: OXCARBAZEPINE
     Dosage: 600 MILLIGRAM, BID (2-0-2)
     Route: 065
  47. OXCARBAZEPINE [Suspect]
     Active Substance: OXCARBAZEPINE
     Dosage: 600 MILLIGRAM, BID (2-0-2)
  48. OXCARBAZEPINE [Suspect]
     Active Substance: OXCARBAZEPINE
     Dosage: 600 MILLIGRAM, BID (2-0-2)
     Route: 065
  49. CENOBAMATE [Concomitant]
     Active Substance: CENOBAMATE
     Dosage: 350 MILLIGRAM, QD
  50. CENOBAMATE [Concomitant]
     Active Substance: CENOBAMATE
     Dosage: 350 MILLIGRAM, QD
  51. CENOBAMATE [Concomitant]
     Active Substance: CENOBAMATE
     Dosage: 350 MILLIGRAM, QD
     Route: 065
  52. CENOBAMATE [Concomitant]
     Active Substance: CENOBAMATE
     Dosage: 350 MILLIGRAM, QD
     Route: 065
  53. CENOBAMATE [Concomitant]
     Active Substance: CENOBAMATE
     Dosage: 200 MILLIGRAM, QD
  54. CENOBAMATE [Concomitant]
     Active Substance: CENOBAMATE
     Dosage: 200 MILLIGRAM, QD
  55. CENOBAMATE [Concomitant]
     Active Substance: CENOBAMATE
     Dosage: 200 MILLIGRAM, QD
     Route: 065
  56. CENOBAMATE [Concomitant]
     Active Substance: CENOBAMATE
     Dosage: 200 MILLIGRAM, QD
     Route: 065
  57. CENOBAMATE [Concomitant]
     Active Substance: CENOBAMATE
     Dosage: 300 MILLIGRAM, QD
  58. CENOBAMATE [Concomitant]
     Active Substance: CENOBAMATE
     Dosage: 300 MILLIGRAM, QD
     Route: 065
  59. CENOBAMATE [Concomitant]
     Active Substance: CENOBAMATE
     Dosage: 300 MILLIGRAM, QD
  60. CENOBAMATE [Concomitant]
     Active Substance: CENOBAMATE
     Dosage: 300 MILLIGRAM, QD
     Route: 065
  61. TRAZODONE [Concomitant]
     Active Substance: TRAZODONE HYDROCHLORIDE
     Dosage: 150 MILLIGRAM, QD (0-0-1)
  62. TRAZODONE [Concomitant]
     Active Substance: TRAZODONE HYDROCHLORIDE
     Dosage: 150 MILLIGRAM, QD (0-0-1)
     Route: 065
  63. TRAZODONE [Concomitant]
     Active Substance: TRAZODONE HYDROCHLORIDE
     Dosage: 150 MILLIGRAM, QD (0-0-1)
     Route: 065
  64. TRAZODONE [Concomitant]
     Active Substance: TRAZODONE HYDROCHLORIDE
     Dosage: 150 MILLIGRAM, QD (0-0-1)

REACTIONS (8)
  - Epilepsy [Unknown]
  - Drug ineffective [Unknown]
  - Treatment noncompliance [Unknown]
  - Nervousness [Unknown]
  - Restlessness [Unknown]
  - Balance disorder [Unknown]
  - Diplopia [Unknown]
  - Ataxia [Unknown]

NARRATIVE: CASE EVENT DATE: 20220901
